FAERS Safety Report 4854972-1 (Version None)
Quarter: 2005Q4

REPORT INFORMATION
  Report Type: 
  Country: None (occurrence: None)
  Receive Date: 20051214
  Receipt Date: 20051201
  Transmission Date: 20060501
  Serious: Yes (Other)
  Sender: FDA-Public Use
  Company Number: EM2005-0595

PATIENT
  Sex: Male

DRUGS (2)
  1. PROLEUKIN [Suspect]
     Indication: METASTATIC RENAL CELL CARCINOMA
     Dosage: 18 MIU/M2, QD, CONT IV INFUS
     Route: 042
  2. INTRON A [Suspect]
     Indication: METASTATIC RENAL CELL CARCINOMA
     Dosage: 6 MIU/M2, TIW, SUBCUTAN.
     Route: 058

REACTIONS (2)
  - COLITIS ISCHAEMIC [None]
  - LARGE INTESTINE PERFORATION [None]
